FAERS Safety Report 20160765 (Version 3)
Quarter: 2022Q1

REPORT INFORMATION
  Report Type: Spontaneous
  Country: US (occurrence: None)
  Receive Date: 20211208
  Receipt Date: 20220325
  Transmission Date: 20220423
  Serious: No
  Sender: FDA-Public Use
  Company Number: 2021A854233

PATIENT
  Age: 60 Year
  Sex: Male
  Weight: 66.2 kg

DRUGS (1)
  1. SYMBICORT [Suspect]
     Active Substance: BUDESONIDE\FORMOTEROL FUMARATE DIHYDRATE
     Indication: Asthma
     Dosage: 160/4.5, FREQUENTLY THE PATIENT WILL TAKE TWO PUFFS IN THE MORNING
     Route: 055
     Dates: start: 2014

REACTIONS (5)
  - Fatigue [Unknown]
  - Palpitations [Unknown]
  - Intentional product misuse [Unknown]
  - Drug ineffective [Unknown]
  - Device delivery system issue [Unknown]
